FAERS Safety Report 9735748 (Version 2)
Quarter: 2013Q4

REPORT INFORMATION
  Report Type: Spontaneous
  Country: US (occurrence: US)
  Receive Date: 20131206
  Receipt Date: 20131206
  Transmission Date: 20140711
  Serious: No
  Sender: FDA-Public Use
  Company Number: US-GILEAD-2009-0022642

PATIENT
  Sex: Male
  Weight: 68.49 kg

DRUGS (13)
  1. LETAIRIS [Suspect]
     Indication: PULMONARY ARTERIAL HYPERTENSION
     Route: 048
     Dates: start: 20090526
  2. REVATIO [Concomitant]
  3. SIMVASTATIN [Concomitant]
  4. NORVASC [Concomitant]
  5. ZIAC [Concomitant]
  6. LISINOPRIL [Concomitant]
  7. METFORMIN HCL [Concomitant]
  8. ECOTRIN [Concomitant]
  9. ZYRTEC [Concomitant]
  10. GLIPIZIDE [Concomitant]
  11. PROTONIX [Concomitant]
  12. OXYGEN [Concomitant]
  13. COMPLETE MULTIVITAMIN [Concomitant]

REACTIONS (1)
  - Oedema [Unknown]
